FAERS Safety Report 18620312 (Version 2)
Quarter: 2020Q4

REPORT INFORMATION
  Report Type: Spontaneous
  Country: US (occurrence: US)
  Receive Date: 20201215
  Receipt Date: 20201223
  Transmission Date: 20210114
  Serious: Yes (Other)
  Sender: FDA-Public Use
  Company Number: US-SERVIER-S20012484

PATIENT

DRUGS (10)
  1. ONCASPAR [Suspect]
     Active Substance: PEGASPARGASE
     Indication: ACUTE LYMPHOCYTIC LEUKAEMIA
     Dosage: UNK
     Route: 065
  2. ONCASPAR [Suspect]
     Active Substance: PEGASPARGASE
     Dosage: 25 ML, SINGLE (2ND DOSE)
     Route: 042
     Dates: start: 20201130, end: 20201130
  3. TN UNSPECIFIED [Concomitant]
     Indication: PREMEDICATION
     Dosage: 37.5 MG, ONE DOSE
     Route: 048
     Dates: start: 20201130, end: 20201130
  4. TN UNSPECIFIED [Concomitant]
     Indication: PREMEDICATION
     Dosage: 20 MG, ONE DOSE
     Route: 048
     Dates: start: 20201130, end: 20201130
  5. TN UNSPECIFIED [Concomitant]
     Indication: ACUTE LYMPHOCYTIC LEUKAEMIA
     Dosage: 1.91 MG, ONE DOSE
     Route: 042
     Dates: start: 20201130, end: 20201130
  6. TN UNSPECIFIED [Concomitant]
     Indication: PREMEDICATION
     Dosage: 39 MG, ONE DOSE
     Route: 042
     Dates: start: 20201130, end: 20201130
  7. TN UNSPECIFIED [Concomitant]
     Indication: PRODUCT USED FOR UNKNOWN INDICATION
     Dosage: 780 ML, ONE DOSE
     Route: 042
     Dates: start: 20201130, end: 20201130
  8. TN UNSPECIFIED [Concomitant]
     Indication: ACUTE LYMPHOCYTIC LEUKAEMIA
     Dosage: 15 MG, ONE DOSE
     Route: 037
  9. TN UNSPECIFIED [Concomitant]
     Indication: PREMEDICATION
     Dosage: 500 MG, ONE DOSE
     Route: 048
     Dates: start: 20201130, end: 20201130
  10. SALINE [Concomitant]
     Active Substance: SODIUM CHLORIDE
     Indication: PRODUCT USED FOR UNKNOWN INDICATION
     Dosage: 780 MILLION IU
     Route: 065
     Dates: start: 20201130, end: 20201130

REACTIONS (1)
  - Hypersensitivity [Recovered/Resolved]

NARRATIVE: CASE EVENT DATE: 20201130
